FAERS Safety Report 4618674-9 (Version None)
Quarter: 2005Q1

REPORT INFORMATION
  Report Type: 
  Country: None (occurrence: None)
  Receive Date: 20050324
  Receipt Date: 20050304
  Transmission Date: 20050727
  Serious: Yes (Other)
  Sender: FDA-Public Use
  Company Number: USA050291611

PATIENT
  Age: 80 Year
  Sex: Male

DRUGS (3)
  1. ALIMTA [Suspect]
     Indication: NON-SMALL CELL LUNG CANCER
     Dosage: 870 MG
     Dates: start: 20050131
  2. VITAMIN B-12 [Concomitant]
  3. FOLIC ACID [Concomitant]

REACTIONS (5)
  - HEPATIC CONGESTION [None]
  - HEPATIC FAILURE [None]
  - PERICARDIAL EFFUSION MALIGNANT [None]
  - RENAL DISORDER [None]
  - RENAL FAILURE [None]
